FAERS Safety Report 11229751 (Version 1)
Quarter: 2015Q2

REPORT INFORMATION
  Report Type: Spontaneous
  Country: HR (occurrence: HR)
  Receive Date: 20150630
  Receipt Date: 20150630
  Transmission Date: 20150821
  Serious: Yes (Other)
  Sender: FDA-Public Use
  Company Number: PHHY2015HR074595

PATIENT
  Age: 18 Year
  Sex: Male
  Weight: 104 kg

DRUGS (1)
  1. AMOXICILLIN. [Suspect]
     Active Substance: AMOXICILLIN
     Indication: PHARYNGITIS
     Dosage: 1G; 2X1
     Route: 048
     Dates: start: 20150605, end: 20150608

REACTIONS (5)
  - Nausea [Recovered/Resolved]
  - Local swelling [Recovered/Resolved]
  - Dizziness [Recovered/Resolved]
  - Swelling face [Recovered/Resolved]
  - Diarrhoea [Recovered/Resolved]

NARRATIVE: CASE EVENT DATE: 20150608
